FAERS Safety Report 9059751 (Version 1)
Quarter: 2013Q1

REPORT INFORMATION
  Report Type: Spontaneous
  Country: US (occurrence: None)
  Receive Date: 20130206
  Receipt Date: 20130206
  Transmission Date: 20140127
  Serious: Yes (Other)
  Sender: FDA-Public Use
  Company Number: None

PATIENT
  Age: 75 Year
  Sex: Male
  Weight: 81.65 kg

DRUGS (2)
  1. COVERSYL [Suspect]
     Route: 048
     Dates: start: 20100101, end: 20130201
  2. INDAPAMIDE/PERINDOPRIL [Suspect]

REACTIONS (1)
  - Dizziness [None]
